FAERS Safety Report 21333335 (Version 1)
Quarter: 2022Q3

REPORT INFORMATION
  Report Type: Report from Study
  Country: CA (occurrence: CA)
  Receive Date: 20220914
  Receipt Date: 20220914
  Transmission Date: 20221027
  Serious: Yes (Other)
  Sender: FDA-Public Use
  Company Number: CA-BAUSCH-BL-2022-021865

PATIENT
  Age: 90 Year
  Sex: Female

DRUGS (1)
  1. DEXAMETHASONE [Suspect]
     Active Substance: DEXAMETHASONE
     Indication: Immune thrombocytopenia
     Route: 065

REACTIONS (5)
  - Delirium [Unknown]
  - Drug intolerance [Unknown]
  - Infection [Unknown]
  - Drug ineffective [Unknown]
  - Product use in unapproved indication [Unknown]
